FAERS Safety Report 10962526 (Version 1)
Quarter: 2015Q1

REPORT INFORMATION
  Report Type: Spontaneous
  Country: US (occurrence: US)
  Receive Date: 20150327
  Receipt Date: 20150327
  Transmission Date: 20150721
  Serious: Yes (Hospitalization, Other)
  Sender: FDA-Public Use
  Company Number: US-ROXANE LABORATORIES, INC.-2015-RO-00540RO

PATIENT
  Age: 66 Year
  Sex: Male
  Weight: 91 kg

DRUGS (3)
  1. VELCADE [Suspect]
     Active Substance: BORTEZOMIB
     Indication: PLASMA CELL MYELOMA
     Dosage: 2.69MG STRENGTH
     Route: 058
     Dates: start: 20141230, end: 20150109
  2. COUMADIN [Concomitant]
     Active Substance: WARFARIN SODIUM
     Indication: AORTIC VALVE REPLACEMENT
     Route: 065
  3. DEXAMETHASONE. [Suspect]
     Active Substance: DEXAMETHASONE
     Indication: PLASMA CELL MYELOMA
     Route: 048
     Dates: start: 20141230, end: 20150109

REACTIONS (3)
  - Upper gastrointestinal haemorrhage [Unknown]
  - Haematemesis [Unknown]
  - Anticoagulation drug level below therapeutic [Unknown]

NARRATIVE: CASE EVENT DATE: 20150112
